FAERS Safety Report 9198349 (Version 1)
Quarter: 2013Q1

REPORT INFORMATION
  Report Type: Spontaneous
  Country: FR (occurrence: FR)
  Receive Date: 20130329
  Receipt Date: 20130329
  Transmission Date: 20140127
  Serious: Yes (Hospitalization)
  Sender: FDA-Public Use
  Company Number: FR-PFIZER INC-2013092560

PATIENT
  Age: 65 Year
  Sex: Male
  Weight: 67 kg

DRUGS (9)
  1. REVATIO [Suspect]
     Indication: PULMONARY HYPERTENSION
     Dosage: 20 MG, 3X/DAY
     Route: 048
     Dates: start: 200806
  2. FLOLAN [Concomitant]
     Indication: PULMONARY ARTERIAL HYPERTENSION
     Dosage: 10 NG/KG PER DAY
     Route: 042
     Dates: start: 200806
  3. FLOLAN [Concomitant]
     Dosage: 22 NG/KG PER DAY
     Dates: start: 20080819
  4. LASILIX [Concomitant]
     Dosage: 250 MG, 1X/DAY
     Route: 048
  5. PREVISCAN [Concomitant]
     Route: 048
  6. ALDACTONE [Concomitant]
     Dosage: 25 MG A DAY
     Route: 048
  7. ALLOPURINOL [Concomitant]
     Dosage: 300 MG A DAY
     Route: 048
  8. DIFFU K [Concomitant]
     Route: 048
  9. OGASTORO [Concomitant]
     Route: 048

REACTIONS (2)
  - Melanoderma [Not Recovered/Not Resolved]
  - Pruritus [Not Recovered/Not Resolved]
